FAERS Safety Report 6045135-5 (Version None)
Quarter: 2009Q1

REPORT INFORMATION
  Report Type: 
  Country: None (occurrence: None)
  Receive Date: 20090116
  Receipt Date: 20090116
  Transmission Date: 20090719
  Serious: Yes (Hospitalization)
  Sender: FDA-Public Use
  Company Number: None

PATIENT
  Sex: Female
  Weight: 62.27 kg

DRUGS (2)
  1. CISPLATIN [Suspect]
     Dosage: 85 MG
  2. ALIMTA [Suspect]
     Dosage: 850 MG

REACTIONS (4)
  - BLOOD PRESSURE INCREASED [None]
  - HEART RATE INCREASED [None]
  - HYPERSENSITIVITY [None]
  - INFUSION RELATED REACTION [None]
